FAERS Safety Report 9515050 (Version 1)
Quarter: 2013Q3

REPORT INFORMATION
  Report Type: Spontaneous
  Country: US (occurrence: US)
  Receive Date: 20130911
  Receipt Date: 20130911
  Transmission Date: 20140515
  Serious: Yes (Hospitalization, Other)
  Sender: FDA-Public Use
  Company Number: US-SANOFI-AVENTIS-2013SA089389

PATIENT
  Age: 79 Year
  Sex: Female
  Weight: 66 kg

DRUGS (2)
  1. LANTUS SOLOSTAR [Suspect]
     Indication: TYPE 2 DIABETES MELLITUS
     Dosage: PRODUCT STARTED 7 YEARS AGO DOSE:50 UNIT(S)
     Route: 058
  2. SOLOSTAR [Concomitant]

REACTIONS (3)
  - Bacterial infection [Unknown]
  - Atrial fibrillation [Unknown]
  - Weight decreased [Unknown]
